FAERS Safety Report 21998915 (Version 1)
Quarter: 2023Q1

REPORT INFORMATION
  Report Type: Spontaneous
  Country: GB (occurrence: GB)
  Receive Date: 20230216
  Receipt Date: 20230216
  Transmission Date: 20230417
  Serious: Yes (Disabling, Other)
  Sender: FDA-Public Use
  Company Number: GB-MHRA-MED-202302081825451290-RFVQD

PATIENT
  Age: 58 Year
  Sex: Male
  Weight: 114 kg

DRUGS (3)
  1. ARIPIPRAZOLE [Suspect]
     Active Substance: ARIPIPRAZOLE
     Indication: Product used for unknown indication
     Dosage: 10 MG
     Route: 065
     Dates: start: 202007
  2. ARIPIPRAZOLE [Suspect]
     Active Substance: ARIPIPRAZOLE
     Dosage: TAILED OFF
     Route: 065
     Dates: start: 202102
  3. ARIPIPRAZOLE [Suspect]
     Active Substance: ARIPIPRAZOLE
     Dosage: 15 MG
     Route: 065
     Dates: start: 202110, end: 20230111

REACTIONS (2)
  - Parkinsonian gait [Not Recovered/Not Resolved]
  - Parkinsonian gait [Recovered/Resolved]

NARRATIVE: CASE EVENT DATE: 20201001
